FAERS Safety Report 5143410-X (Version None)
Quarter: 2006Q4

REPORT INFORMATION
  Report Type: 
  Country: None (occurrence: None)
  Receive Date: 20061101
  Receipt Date: 20061101
  Transmission Date: 20070319
  Serious: Yes (Hospitalization)
  Sender: FDA-Public Use
  Company Number: None

PATIENT
  Sex: Male
  Weight: 74.1 kg

DRUGS (3)
  1. FLUDARABINE [Suspect]
     Indication: LYMPHOMA
     Dosage: 57 MG DAILY IV
     Route: 042
     Dates: start: 20060818, end: 20060820
  2. MELPHAAN [Suspect]
     Dosage: 266 TIMES ONE IV
     Route: 042
     Dates: start: 20060823, end: 20060823
  3. CAMPATH [Concomitant]

REACTIONS (10)
  - ASPIRATION [None]
  - BLOOD CULTURE POSITIVE [None]
  - HEART RATE INCREASED [None]
  - INFECTION [None]
  - PHARYNGOLARYNGEAL PAIN [None]
  - PRODUCTIVE COUGH [None]
  - RESPIRATORY RATE INCREASED [None]
  - SPUTUM DISCOLOURED [None]
  - STAPHYLOCOCCAL INFECTION [None]
  - UPPER RESPIRATORY TRACT INFECTION [None]
